FAERS Safety Report 13734736 (Version 1)
Quarter: 2017Q3

REPORT INFORMATION
  Report Type: Spontaneous
  Country: US (occurrence: US)
  Receive Date: 20170710
  Receipt Date: 20170710
  Transmission Date: 20171127
  Serious: Yes (Other)
  Sender: FDA-Public Use
  Company Number: US-AUROBINDO-AUR-APU-2015-03303

PATIENT
  Sex: Male
  Weight: 58.96 kg

DRUGS (1)
  1. CLOPIDOGREL [Suspect]
     Active Substance: CLOPIDOGREL BISULFATE
     Indication: SURGERY
     Dosage: 75 MG, ONCE A DAY
     Route: 048

REACTIONS (1)
  - Internal haemorrhage [Not Recovered/Not Resolved]
